FAERS Safety Report 4689121-6 (Version None)
Quarter: 2005Q2

REPORT INFORMATION
  Report Type: 
  Country: None (occurrence: None)
  Receive Date: 20050613
  Receipt Date: 20050601
  Transmission Date: 20051028
  Serious: Yes (Other)
  Sender: FDA-Public Use
  Company Number: 2005AP03164

PATIENT
  Age: 75 Year
  Sex: Female

DRUGS (4)
  1. PULMICORT [Suspect]
     Indication: ASTHMA
     Route: 055
  2. LIPITOR [Suspect]
     Indication: METABOLIC DISORDER
     Dosage: LONG TERM
     Route: 048
  3. CIPRAMIL [Suspect]
     Indication: DEPRESSION
     Route: 048
  4. OROXINE [Concomitant]
     Route: 048

REACTIONS (2)
  - CONTUSION [None]
  - LYMPHOMA [None]
